FAERS Safety Report 24096143 (Version 1)
Quarter: 2024Q3

REPORT INFORMATION
  Report Type: Spontaneous
  Country: US (occurrence: None)
  Receive Date: 20240715
  Receipt Date: 20240715
  Transmission Date: 20241017
  Serious: Yes (Disabling)
  Sender: Public
  Company Number: None

PATIENT
  Age: 52 Year
  Sex: Female
  Weight: 99 kg

DRUGS (9)
  1. CIPROFLOXACIN [Suspect]
     Active Substance: CIPROFLOXACIN
     Indication: Urinary tract infection
     Dates: start: 20231228, end: 20240102
  2. MAGNESIUM [Concomitant]
     Active Substance: MAGNESIUM
  3. CA [Concomitant]
  4. FOLATE SODIUM [Concomitant]
     Active Substance: FOLATE SODIUM
  5. IRON [Concomitant]
     Active Substance: IRON
  6. FISH OIL [Concomitant]
     Active Substance: FISH OIL
  7. COENZYME Q10 [Concomitant]
     Active Substance: DIETARY SUPPLEMENT\UBIDECARENONE
  8. GLUCOSAMINE [Concomitant]
     Active Substance: GLUCOSAMINE
  9. BLUEBERRY [Concomitant]
     Active Substance: BLUEBERRY

REACTIONS (25)
  - Tendon pain [None]
  - Tendon pain [None]
  - Pain in extremity [None]
  - Arthralgia [None]
  - Arthralgia [None]
  - Gait disturbance [None]
  - Therapy cessation [None]
  - Pain in extremity [None]
  - Pain in extremity [None]
  - Hypoaesthesia [None]
  - Hypoaesthesia [None]
  - Paraesthesia [None]
  - Sensory disturbance [None]
  - Gingival bleeding [None]
  - Vision blurred [None]
  - Restlessness [None]
  - Insomnia [None]
  - Alopecia [None]
  - Muscular weakness [None]
  - Muscular weakness [None]
  - Quality of life decreased [None]
  - Walking aid user [None]
  - Grip strength decreased [None]
  - Product communication issue [None]
  - Product complaint [None]

NARRATIVE: CASE EVENT DATE: 20240102
